FAERS Safety Report 11811370 (Version 2)
Quarter: 2015Q4

REPORT INFORMATION
  Report Type: Report from Study
  Country: BE (occurrence: BE)
  Receive Date: 20151208
  Receipt Date: 20151229
  Transmission Date: 20160305
  Serious: Yes (Hospitalization, Other)
  Sender: FDA-Public Use
  Company Number: PHHO2015BE015486

PATIENT
  Age: 52 Year
  Sex: Female
  Weight: 77 kg

DRUGS (9)
  1. VIBRA-TABS [Concomitant]
     Active Substance: DOXYCYCLINE HYCLATE
     Indication: RASH
     Dosage: 100 ?G, 1D
     Route: 048
     Dates: start: 20150920
  2. CIPROFLOXACINE [Concomitant]
     Active Substance: CIPROFLOXACIN
     Indication: SKIN LESION
     Dosage: 500 UG, BID
     Route: 048
     Dates: start: 20150922
  3. TRAMETINIB [Suspect]
     Active Substance: TRAMETINIB
     Indication: MALIGNANT MELANOMA
     Dosage: 2 MG, QD
     Route: 048
     Dates: start: 20110309
  4. TRAMETINIB [Suspect]
     Active Substance: TRAMETINIB
     Dosage: UNK
     Route: 048
  5. ALDACTAZINE [Concomitant]
     Active Substance: ALTHIAZIDE\SPIRONOLACTONE
     Indication: OEDEMA
  6. D-CURE [Concomitant]
     Indication: HYPOVITAMINOSIS
     Dosage: 1 DF, QMO (1 AMPOULE AND ONCE IN A MONTH)
     Route: 048
     Dates: start: 20120524
  7. ALDACTAZINE [Concomitant]
     Active Substance: ALTHIAZIDE\SPIRONOLACTONE
     Indication: HYPERTENSION
     Dosage: 25 ?G, 1D
     Route: 048
     Dates: start: 20110509
  8. DOXYCYCLINE. [Concomitant]
     Active Substance: DOXYCYCLINE
     Indication: RASH
     Dosage: 100 UG, QD
     Route: 048
     Dates: start: 20150429, end: 20150920
  9. AUGMENTIN [Concomitant]
     Active Substance: AMOXICILLIN\CLAVULANATE POTASSIUM
     Indication: SKIN LESION
     Dosage: 1 G, BID
     Route: 048
     Dates: start: 20150821, end: 20150922

REACTIONS (2)
  - Gastritis erosive [Recovered/Resolved]
  - Clostridium bacteraemia [Recovered/Resolved]

NARRATIVE: CASE EVENT DATE: 20150919
